FAERS Safety Report 4684574-1 (Version None)
Quarter: 2005Q2

REPORT INFORMATION
  Report Type: 
  Country: None (occurrence: None)
  Receive Date: 20050606
  Receipt Date: 20040825
  Transmission Date: 20051028
  Serious: Yes (Other)
  Sender: FDA-Public Use
  Company Number: 10046924-PS140350-1

PATIENT

DRUGS (2)
  1. 1# 2B0953 - HEPARIN SODIUM AND 0.9% SODIUM CHLORIDE INJECTION (1000 US [Suspect]
     Dates: start: 20040112
  2. HEPARIN [Concomitant]

REACTIONS (1)
  - HAEMORRHAGE [None]
